FAERS Safety Report 6377594-2 (Version None)
Quarter: 2009Q3

REPORT INFORMATION
  Report Type: 
  Country: None (occurrence: None)
  Receive Date: 20090923
  Receipt Date: 20090923
  Transmission Date: 20100115
  Serious: Yes (Hospitalization)
  Sender: FDA-Public Use
  Company Number: None

PATIENT
  Age: 61 Year
  Sex: Female
  Weight: 72.6 kg

DRUGS (10)
  1. AMPHOTERICIN B [Suspect]
     Indication: SINUSITIS FUNGAL
     Dosage: 110MG IV X 1
     Route: 042
     Dates: start: 20090428
  2. AMPHOTERICIN B [Suspect]
     Indication: SINUSITIS FUNGAL
     Dosage: 365MG IV X 1
     Route: 042
     Dates: start: 20090429
  3. CLINDAMYCIN [Concomitant]
  4. CLONAZEPAM [Concomitant]
  5. DICYCLOMINE [Concomitant]
  6. HEPARIN [Concomitant]
  7. DOCUSATE [Concomitant]
  8. EZETIMIBEL [Concomitant]
  9. SIMVASTATIN [Concomitant]
  10. SENNA [Concomitant]

REACTIONS (2)
  - ASPERGILLOSIS [None]
  - BLOOD CREATININE INCREASED [None]
